FAERS Safety Report 13233036 (Version 2)
Quarter: 2017Q1

REPORT INFORMATION
  Report Type: Spontaneous
  Country: IT (occurrence: IT)
  Receive Date: 20170214
  Receipt Date: 20170228
  Transmission Date: 20170428
  Serious: Yes (Other)
  Sender: FDA-Public Use
  Company Number: IT-ELI_LILLY_AND_COMPANY-IT201702002924

PATIENT
  Age: 66 Year
  Sex: Female

DRUGS (1)
  1. FORSTEO [Suspect]
     Active Substance: TERIPARATIDE
     Indication: PRODUCT USED FOR UNKNOWN INDICATION
     Dosage: UNK, UNKNOWN
     Route: 065
     Dates: start: 20170204

REACTIONS (12)
  - Influenza [Unknown]
  - Headache [Unknown]
  - Pyrexia [Unknown]
  - Loss of consciousness [Unknown]
  - Nausea [Unknown]
  - Ear congestion [Unknown]
  - Fall [Unknown]
  - Feeling of body temperature change [Unknown]
  - Dizziness [Unknown]
  - Injection site pain [Unknown]
  - Vertigo [Unknown]
  - Injection site erythema [Unknown]
